FAERS Safety Report 16942842 (Version 2)
Quarter: 2020Q1

REPORT INFORMATION
  Report Type: Spontaneous
  Country: GB (occurrence: GB)
  Receive Date: 20191021
  Receipt Date: 20200204
  Transmission Date: 20200409
  Serious: Yes (Disabling)
  Sender: FDA-Public Use
  Company Number: GB-MYLANLABS-2019M1098367

PATIENT
  Age: 13 Year
  Sex: Male
  Weight: 44 kg

DRUGS (1)
  1. LEVETIRACETAM. [Suspect]
     Active Substance: LEVETIRACETAM
     Indication: PRODUCT USED FOR UNKNOWN INDICATION
     Dosage: 1 GRAM, TAKE AS DIRECTED
     Route: 065
     Dates: start: 20190624

REACTIONS (12)
  - Tension [Unknown]
  - Mood altered [Unknown]
  - Blepharospasm [Recovering/Resolving]
  - Photophobia [Unknown]
  - Chills [Unknown]
  - Aphasia [Unknown]
  - Dysphemia [Unknown]
  - Muscle twitching [Recovering/Resolving]
  - Panic attack [Unknown]
  - Hyperacusis [Unknown]
  - Eye movement disorder [Unknown]
  - Agitation [Unknown]

NARRATIVE: CASE EVENT DATE: 20190919
